FAERS Safety Report 5469509-6 (Version None)
Quarter: 2007Q3

REPORT INFORMATION
  Report Type: 
  Country: None (occurrence: None)
  Receive Date: 20070927
  Receipt Date: 20070921
  Transmission Date: 20080115
  Serious: Yes (Hospitalization)
  Sender: FDA-Public Use
  Company Number: A0684166A

PATIENT
  Age: 50 Year
  Sex: Female

DRUGS (10)
  1. GW468816 [Suspect]
     Dosage: 200MG PER DAY
     Dates: start: 20070801, end: 20070805
  2. NICOTINE [Suspect]
     Dates: start: 20070611, end: 20070730
  3. SPIRIVA [Concomitant]
     Dates: start: 20070514
  4. PERCOCET [Concomitant]
     Dates: start: 20070703, end: 20070731
  5. PREDNISONE [Concomitant]
     Dates: start: 20070727, end: 20070731
  6. ULTRAM [Concomitant]
     Dates: start: 20070728
  7. TYLENOL (CAPLET) [Concomitant]
     Dates: start: 20070728
  8. CALCIUM [Concomitant]
     Dates: start: 20030101
  9. ASCORBIC ACID [Concomitant]
     Dates: start: 20030101
  10. GLUCOSAMINE + CHONDROITIN [Concomitant]
     Dates: start: 20030101

REACTIONS (3)
  - DYSPNOEA [None]
  - PULMONARY MASS [None]
  - WHEEZING [None]
